FAERS Safety Report 4711833-6 (Version None)
Quarter: 2005Q3

REPORT INFORMATION
  Report Type: 
  Country: None (occurrence: None)
  Receive Date: 20050708
  Receipt Date: 20040514
  Transmission Date: 20060218
  Serious: Yes (Other)
  Sender: FDA-Public Use
  Company Number: US-2004-025527

PATIENT
  Age: 23 Year
  Sex: Female
  Weight: 54.4 kg

DRUGS (1)
  1. ULTRAVIST 300 [Suspect]
     Indication: COMPUTERISED TOMOGRAM
     Dosage: 100 ML, 1 DOSE, INTRAVENOUS
     Route: 042
     Dates: start: 20040506, end: 20040506

REACTIONS (4)
  - OROPHARYNGEAL SWELLING [None]
  - PRURITUS [None]
  - SWELLING FACE [None]
  - TONGUE DISORDER [None]
